FAERS Safety Report 20816916 (Version 1)
Quarter: 2022Q2

REPORT INFORMATION
  Report Type: Spontaneous
  Country: US (occurrence: US)
  Receive Date: 20220512
  Receipt Date: 20220512
  Transmission Date: 20220721
  Serious: No
  Sender: FDA-Public Use
  Company Number: US-JNJFOC-20220520090

PATIENT

DRUGS (2)
  1. MENS ROGAINE [Suspect]
     Active Substance: MINOXIDIL
     Indication: Alopecia
     Dosage: SOMETIMES ONCE
     Route: 061
     Dates: start: 2022
  2. MENS ROGAINE [Suspect]
     Active Substance: MINOXIDIL
     Dosage: SOMETIMES TWICE
     Route: 061
     Dates: start: 2022

REACTIONS (2)
  - Alopecia [Unknown]
  - Inappropriate schedule of product administration [Unknown]
